FAERS Safety Report 26103793 (Version 1)
Quarter: 2025Q4

REPORT INFORMATION
  Report Type: Spontaneous
  Country: US (occurrence: US)
  Receive Date: 20251129
  Receipt Date: 20251129
  Transmission Date: 20260117
  Serious: Yes (Other)
  Sender: ACCORD
  Company Number: US-Accord-515141

PATIENT
  Age: 10 Month
  Sex: Female

DRUGS (3)
  1. CARBOPLATIN [Suspect]
     Active Substance: CARBOPLATIN
     Indication: Retinoblastoma
     Dosage: VOLUME: 20 ML ; 6 CYCLES
  2. TOPOTECAN [Suspect]
     Active Substance: TOPOTECAN HYDROCHLORIDE
     Indication: Retinoblastoma
     Dosage: VOLUME: 20 ML; 6 CYCLES
  3. MELPHALAN [Suspect]
     Active Substance: MELPHALAN
     Indication: Retinoblastoma
     Dosage: VOLUME: 20 ML ; 6 CYCLES;

REACTIONS (10)
  - Vomiting [Recovered/Resolved]
  - Cerebral ischaemia [Recovered/Resolved]
  - Nausea [Recovered/Resolved]
  - Gastrointestinal motility disorder [Recovered/Resolved]
  - Fatigue [Recovered/Resolved]
  - Hypotension [Recovered/Resolved]
  - Visual pathway disorder [Recovered/Resolved]
  - Cerebral disorder [Recovered/Resolved]
  - Air embolism [Recovered/Resolved]
  - Off label use [Unknown]
